FAERS Safety Report 20850005 (Version 6)
Quarter: 2022Q4

REPORT INFORMATION
  Report Type: Spontaneous
  Country: US (occurrence: US)
  Receive Date: 20220519
  Receipt Date: 20221227
  Transmission Date: 20230113
  Serious: No
  Sender: FDA-Public Use
  Company Number: US-PFIZER INC-202200714165

PATIENT
  Age: 66 Year
  Sex: Female

DRUGS (2)
  1. IBRANCE [Suspect]
     Active Substance: PALBOCICLIB
     Dosage: 5 DAYS ON, TWO DAYS OFF
     Route: 048
  2. IBRANCE [Suspect]
     Active Substance: PALBOCICLIB
     Dosage: TAKE FOR 4 DAYS OUT OF EVERY 7 (4 DAYS ON, 3 DAYS OFF) FOR 21 DAYS THEN 7 DAYS OFF
     Route: 048

REACTIONS (4)
  - Full blood count abnormal [Unknown]
  - Neutrophil count decreased [Unknown]
  - Off label use [Unknown]
  - Product use issue [Unknown]
